FAERS Safety Report 14494763 (Version 4)
Quarter: 2018Q1

REPORT INFORMATION
  Report Type: Report from Study
  Country: DE (occurrence: DE)
  Receive Date: 20180206
  Receipt Date: 20180227
  Transmission Date: 20180509
  Serious: Yes (Death, Hospitalization)
  Sender: FDA-Public Use
  Company Number: DE-PFIZER INC-2018048816

PATIENT
  Age: 74 Year
  Sex: Female
  Weight: 74 kg

DRUGS (13)
  1. AVASTIN [Suspect]
     Active Substance: BEVACIZUMAB
     Dosage: 740 MG, SINGLE
     Route: 042
     Dates: start: 20110415, end: 20110415
  2. ONDANSETRON [Concomitant]
     Active Substance: ONDANSETRON
     Indication: NAUSEA
     Dosage: UNK
     Dates: start: 20101026
  3. VERAPAMIL HYDROCHLORIDE. [Suspect]
     Active Substance: VERAPAMIL HYDROCHLORIDE
     Indication: HYPERTENSION
     Dosage: 240 MG, UNK
     Route: 048
     Dates: start: 1999, end: 20110806
  4. BENAZEPRIL HYDROCHLORIDE. [Suspect]
     Active Substance: BENAZEPRIL HYDROCHLORIDE
     Indication: HYPERTENSION
     Dosage: 20/25 MG
     Route: 048
     Dates: start: 1999, end: 20110415
  5. GLIMEPIRIDE. [Concomitant]
     Active Substance: GLIMEPIRIDE
     Indication: DIABETES MELLITUS
     Dosage: 2 MG, UNK
     Route: 048
     Dates: start: 20110411
  6. PACLITAXEL. [Suspect]
     Active Substance: PACLITAXEL
     Indication: BREAST CANCER METASTATIC
     Dosage: 90 MG/M2, UNK
     Route: 042
     Dates: start: 20101019, end: 20110322
  7. MOXONIDINE [Concomitant]
     Active Substance: MOXONIDINE
     Indication: HYPERTENSION
     Dosage: 0.4 MG, UNK
     Route: 048
     Dates: start: 1999, end: 20110806
  8. LYRICA [Concomitant]
     Active Substance: PREGABALIN
     Indication: PAIN
     Dosage: UNK
     Dates: start: 20110118
  9. AVASTIN [Suspect]
     Active Substance: BEVACIZUMAB
     Dosage: 668 MG, SINGLE DOSE
     Route: 042
     Dates: start: 20110209, end: 20110209
  10. AVASTIN [Suspect]
     Active Substance: BEVACIZUMAB
     Dosage: 668 MG, SINGLE
     Route: 042
     Dates: start: 20110322, end: 20110322
  11. AVASTIN [Suspect]
     Active Substance: BEVACIZUMAB
     Indication: BREAST CANCER METASTATIC
     Dosage: 740 MG, SINGLE
     Route: 042
     Dates: start: 20101019, end: 20101019
  12. HYDROCHLOROTHIAZIDE. [Concomitant]
     Active Substance: HYDROCHLOROTHIAZIDE
     Dosage: UNK
     Dates: start: 1999, end: 20110415
  13. AMPHO MORONAL [Concomitant]
     Active Substance: AMPHOTERICIN B
     Indication: STOMATITIS
     Dosage: UNK
     Dates: start: 20101116

REACTIONS (7)
  - Disease progression [Fatal]
  - Hypoglycaemia [Recovered/Resolved]
  - Hypertensive crisis [Recovered/Resolved]
  - General physical health deterioration [Fatal]
  - Dizziness [Recovered/Resolved]
  - Cardiovascular disorder [Recovered/Resolved]
  - Epistaxis [Recovered/Resolved]

NARRATIVE: CASE EVENT DATE: 20110209
